FAERS Safety Report 17006833 (Version 1)
Quarter: 2019Q4

REPORT INFORMATION
  Report Type: Spontaneous
  Country: US (occurrence: US)
  Receive Date: 20191106
  Receipt Date: 20191106
  Transmission Date: 20200122
  Serious: Yes (Death)
  Sender: FDA-Public Use
  Company Number: None

PATIENT
  Sex: Male

DRUGS (8)
  1. TOSEMIDE [Concomitant]
  2. OXYCODONE [Concomitant]
     Active Substance: OXYCODONE
  3. METOPROLOL ER 100MG [Concomitant]
  4. PREDNISONE 20MG [Concomitant]
     Active Substance: PREDNISONE
  5. CABOMETYX [Suspect]
     Active Substance: CABOZANTINIB S-MALATE
     Indication: HEPATIC CANCER STAGE IV
     Route: 048
  6. SPIRONOLACTONE. [Concomitant]
     Active Substance: SPIRONOLACTONE
  7. SOFOSBUVIR/VELPATASVIR [Concomitant]
     Active Substance: SOFOSBUVIR\VELPATASVIR
  8. VITAMIN B12 [Concomitant]
     Active Substance: CYANOCOBALAMIN

REACTIONS (1)
  - Asthenia [None]
